FAERS Safety Report 15301454 (Version 2)
Quarter: 2018Q3

REPORT INFORMATION
  Report Type: Spontaneous
  Country: US (occurrence: US)
  Receive Date: 20180821
  Receipt Date: 20180831
  Transmission Date: 20181010
  Serious: No
  Sender: FDA-Public Use
  Company Number: US-SA-2018SA224085

PATIENT
  Sex: Female

DRUGS (1)
  1. LANTUS SOLOSTAR [Suspect]
     Active Substance: INSULIN GLARGINE
     Dosage: 5?23 UNITS, DAILY

REACTIONS (7)
  - Irritability [Unknown]
  - Chromaturia [Unknown]
  - Intentional product use issue [Unknown]
  - Drug dose omission [Unknown]
  - Weight increased [Unknown]
  - Anxiety [Unknown]
  - Micturition disorder [Unknown]
